FAERS Safety Report 5838027-5 (Version None)
Quarter: 2008Q3

REPORT INFORMATION
  Report Type: 
  Country: None (occurrence: None)
  Receive Date: 20080808
  Receipt Date: 20080305
  Transmission Date: 20090109
  Serious: No
  Sender: FDA-Public Use
  Company Number: A0715016A

PATIENT
  Age: 52 Year
  Sex: Male
  Weight: 70.5 kg

DRUGS (4)
  1. PAXIL [Suspect]
     Indication: DEPRESSION
     Route: 048
     Dates: end: 20070901
  2. LUNESTA [Suspect]
     Dosage: 1VA PER DAY
     Route: 048
     Dates: start: 20070701
  3. LEXAPRO [Suspect]
     Indication: DRUG USE FOR UNKNOWN INDICATION
     Route: 048
     Dates: start: 20080101
  4. ZETIA [Concomitant]

REACTIONS (2)
  - MIDDLE INSOMNIA [None]
  - RESTLESS LEGS SYNDROME [None]
